FAERS Safety Report 10335016 (Version 1)
Quarter: 2014Q3

REPORT INFORMATION
  Report Type: Spontaneous
  Country: US (occurrence: US)
  Receive Date: 20140723
  Receipt Date: 20140723
  Transmission Date: 20150326
  Serious: Yes (Hospitalization)
  Sender: FDA-Public Use
  Company Number: US-SA-2014SA094769

PATIENT
  Sex: Male

DRUGS (1)
  1. BCG FOR IMMUNOTHERAPY [Suspect]
     Active Substance: BCG VACCINE
     Indication: BLADDER CANCER
     Route: 065

REACTIONS (9)
  - Rales [Unknown]
  - Pulmonary fibrosis [Unknown]
  - Lung infiltration [Unknown]
  - Hypoxia [Recovering/Resolving]
  - Bovine tuberculosis [Unknown]
  - Cough [Unknown]
  - Heart rate irregular [Unknown]
  - Clubbing [Unknown]
  - Haemoptysis [Unknown]
